FAERS Safety Report 15696142 (Version 1)
Quarter: 2018Q4

REPORT INFORMATION
  Report Type: Spontaneous
  Country: BR (occurrence: BR)
  Receive Date: 20181206
  Receipt Date: 20181206
  Transmission Date: 20190205
  Serious: Yes (Hospitalization, Other)
  Sender: FDA-Public Use
  Company Number: BR-PFIZER INC-2018228726

PATIENT
  Age: 59 Year
  Sex: Male
  Weight: 76 kg

DRUGS (4)
  1. SUTENT [Suspect]
     Active Substance: SUNITINIB MALATE
     Indication: RENAL NEOPLASM
     Dosage: 50 MG, CYCLIC (HE TOOK 28 DAYS AND TOOK 14 DAYS OFF)
     Dates: start: 20180516
  2. SUTENT [Suspect]
     Active Substance: SUNITINIB MALATE
     Dosage: UNK, DAILY
  3. SUTENT [Suspect]
     Active Substance: SUNITINIB MALATE
     Dosage: 50 MG, CYCLIC (HE TOOK 28 DAYS AND TOOK 14 DAYS OFF)
     Dates: start: 20180516
  4. FOLIC ACID. [Concomitant]
     Active Substance: FOLIC ACID
     Dosage: UNK
     Dates: start: 20180622

REACTIONS (15)
  - Anaemia [Recovered/Resolved]
  - Weight decreased [Recovered/Resolved]
  - Abdominal distension [Recovering/Resolving]
  - Neoplasm progression [Unknown]
  - Dysstasia [Unknown]
  - Dry skin [Not Recovered/Not Resolved]
  - Urinary tract infection [Recovered/Resolved]
  - Gait inability [Unknown]
  - Protein total increased [Not Recovered/Not Resolved]
  - Back pain [Not Recovered/Not Resolved]
  - Abdominal pain [Not Recovered/Not Resolved]
  - Diarrhoea [Recovered/Resolved]
  - Hypoaesthesia [Unknown]
  - Vena cava injury [Unknown]
  - Ageusia [Not Recovered/Not Resolved]

NARRATIVE: CASE EVENT DATE: 201805
